FAERS Safety Report 5703855-3 (Version None)
Quarter: 2008Q2

REPORT INFORMATION
  Report Type: 
  Country: None (occurrence: None)
  Receive Date: 20080408
  Receipt Date: 20080325
  Transmission Date: 20081010
  Serious: Yes (Hospitalization)
  Sender: FDA-Public Use
  Company Number: 025826

PATIENT
  Age: 33 Year
  Sex: Female

DRUGS (1)
  1. DIPHENHYDRAMINE HCL [Suspect]
     Dosage: 2500 MG (50 PILLS OF 50 MG) ONCE, ORAL
     Route: 048

REACTIONS (9)
  - DRUG TOXICITY [None]
  - DYSARTHRIA [None]
  - ELECTROCARDIOGRAM QT PROLONGED [None]
  - INTENTIONAL OVERDOSE [None]
  - LETHARGY [None]
  - PH URINE DECREASED [None]
  - RENAL FAILURE [None]
  - RHABDOMYOLYSIS [None]
  - SUICIDE ATTEMPT [None]
